FAERS Safety Report 6160748-8 (Version None)
Quarter: 2009Q2

REPORT INFORMATION
  Report Type: 
  Country: None (occurrence: None)
  Receive Date: 20090420
  Receipt Date: 20090407
  Transmission Date: 20091009
  Serious: Yes (Other)
  Sender: FDA-Public Use
  Company Number: US-PFIZER INC-2009171230

PATIENT

DRUGS (5)
  1. GEODON [Suspect]
     Dosage: UNK
  2. ALCOHOL [Suspect]
  3. LITHIUM [Concomitant]
  4. LAMICTAL [Concomitant]
  5. COGENTIN [Concomitant]

REACTIONS (3)
  - ALCOHOL PROBLEM [None]
  - EXTRAPYRAMIDAL DISORDER [None]
  - HEADACHE [None]
